FAERS Safety Report 5519134-3 (Version None)
Quarter: 2007Q4

REPORT INFORMATION
  Report Type: 
  Country: None (occurrence: None)
  Receive Date: 20071114
  Receipt Date: 20071114
  Transmission Date: 20080405
  Serious: Yes (Death)
  Sender: FDA-Public Use
  Company Number: None

PATIENT
  Age: 66 Year
  Sex: Male
  Weight: 117.9352 kg

DRUGS (1)
  1. CIPROFLOXACIN 500 NO LABEL [Suspect]
     Indication: DRUG USE FOR UNKNOWN INDICATION
     Dosage: 14 2/A DAY PO
     Route: 048
     Dates: start: 20070305, end: 20070311

REACTIONS (10)
  - ABDOMINAL PAIN UPPER [None]
  - ABNORMAL BEHAVIOUR [None]
  - ANXIETY [None]
  - BACK PAIN [None]
  - COMPLETED SUICIDE [None]
  - DEPRESSION [None]
  - GROIN PAIN [None]
  - HALLUCINATIONS, MIXED [None]
  - NOSOCOMIAL INFECTION [None]
  - STAPHYLOCOCCAL INFECTION [None]
